FAERS Safety Report 9138063 (Version 1)
Quarter: 2013Q1

REPORT INFORMATION
  Report Type: Spontaneous
  Country: US (occurrence: US)
  Receive Date: 20130304
  Receipt Date: 20130304
  Transmission Date: 20140127
  Serious: No
  Sender: FDA-Public Use
  Company Number: US-009507513-1303USA001192

PATIENT
  Age: 24 Year
  Sex: Female

DRUGS (1)
  1. AFRIN [Suspect]
     Indication: SINUS HEADACHE
     Dosage: UNK, UNKNOWN
     Route: 045

REACTIONS (1)
  - Nasal discomfort [Unknown]
